FAERS Safety Report 21266163 (Version 1)
Quarter: 2022Q3

REPORT INFORMATION
  Report Type: Spontaneous
  Country: US (occurrence: US)
  Receive Date: 20220829
  Receipt Date: 20220829
  Transmission Date: 20221027
  Serious: No
  Sender: FDA-Public Use
  Company Number: US-PFIZER INC-PV202200041132

PATIENT
  Age: 24 Year

DRUGS (1)
  1. ARTHROTEC [Suspect]
     Active Substance: DICLOFENAC SODIUM\MISOPROSTOL
     Indication: Pain
     Dosage: 2 DF, AS NEEDED (TAKE ONE TABLET TWICE A DAY AS NEEDED)
     Route: 048

REACTIONS (2)
  - Off label use [Unknown]
  - Feeling abnormal [Unknown]
